FAERS Safety Report 9934564 (Version 2)
Quarter: 2015Q4

REPORT INFORMATION
  Report Type: Spontaneous
  Country: US (occurrence: US)
  Receive Date: 20140228
  Receipt Date: 20151118
  Transmission Date: 20160305
  Serious: Yes (Hospitalization)
  Sender: FDA-Public Use
  Company Number: US-ASTRAZENECA-2013SE72190

PATIENT
  Age: 63 Year
  Sex: Female
  Weight: 72.6 kg

DRUGS (51)
  1. TOPROL XL [Suspect]
     Active Substance: METOPROLOL SUCCINATE
     Indication: VENTRICULAR TACHYCARDIA
     Dosage: 50 MG IN AM AND 50 MG IN THE PM
     Route: 048
     Dates: start: 2007
  2. TOPROL XL [Suspect]
     Active Substance: METOPROLOL SUCCINATE
     Indication: HYPERTENSION
     Dosage: 50 MG IN AM AND 25 MG IN THE PM
     Route: 048
     Dates: start: 2007
  3. TOPROL XL [Suspect]
     Active Substance: METOPROLOL SUCCINATE
     Indication: HEART RATE ABNORMAL
     Dosage: 50 MG IN AM AND 25 MG IN THE PM
     Route: 048
     Dates: start: 2007
  4. TOPROL XL [Suspect]
     Active Substance: METOPROLOL SUCCINATE
     Indication: HEART RATE ABNORMAL
     Dosage: GENERIC MANUFACTURED BY WATSON
     Route: 048
     Dates: start: 20130815
  5. TOPROL XL [Suspect]
     Active Substance: METOPROLOL SUCCINATE
     Indication: HYPERTENSION
     Dosage: MANUFACTURED BY WATSON, 100 MG IN THE MORNING AND 50 MG AT NIGHT
     Route: 065
  6. TOPROL XL [Suspect]
     Active Substance: METOPROLOL SUCCINATE
     Indication: HEART RATE ABNORMAL
     Dosage: ALTERNATELY USED PAR AND WATSON BRAND
     Route: 065
  7. DILTIAZEM HYDROCHLORIDE EXTENDED RELEASE [Concomitant]
     Active Substance: DILTIAZEM HYDROCHLORIDE
     Dates: start: 2006
  8. PROTONIX [Concomitant]
     Active Substance: PANTOPRAZOLE SODIUM
  9. ASPIRIN. [Concomitant]
     Active Substance: ASPIRIN
     Indication: ANTICOAGULANT THERAPY
     Dates: start: 2006
  10. FLOVENT HFA [Concomitant]
     Active Substance: FLUTICASONE PROPIONATE
     Indication: ASTHMA
  11. ALBUTEROL. [Concomitant]
     Active Substance: ALBUTEROL
     Indication: BRONCHITIS
     Dosage: 0.083 PERCENT AS REQUIRED, 1 VIAL EVERY 6 HOURS AS NEEDED
  12. NEXIUM [Suspect]
     Active Substance: ESOMEPRAZOLE MAGNESIUM
     Indication: IRRITABLE BOWEL SYNDROME
     Route: 048
  13. TOPROL XL [Suspect]
     Active Substance: METOPROLOL SUCCINATE
     Indication: HYPERTENSION
     Route: 048
     Dates: start: 20060427
  14. TOPROL XL [Suspect]
     Active Substance: METOPROLOL SUCCINATE
     Indication: HEART RATE ABNORMAL
     Route: 048
     Dates: start: 20060427
  15. TOPROL XL [Suspect]
     Active Substance: METOPROLOL SUCCINATE
     Indication: HYPERTENSION
     Dosage: 100 MG IN AM AND 50 MG IN THE PM
     Route: 048
  16. TOPROL XL [Suspect]
     Active Substance: METOPROLOL SUCCINATE
     Indication: HEART RATE ABNORMAL
     Dosage: 100 MG IN AM AND 50 MG IN THE PM
     Route: 048
  17. ROOM AIR BY CONCENTRATOR [Concomitant]
     Dosage: AT NIGHT
  18. NEXIUM [Suspect]
     Active Substance: ESOMEPRAZOLE MAGNESIUM
     Indication: DYSPEPSIA
     Route: 048
  19. CRESTOR [Suspect]
     Active Substance: ROSUVASTATIN CALCIUM
     Indication: BLOOD TRIGLYCERIDES INCREASED
     Route: 048
     Dates: start: 2005
  20. TOPROL XL [Suspect]
     Active Substance: METOPROLOL SUCCINATE
     Indication: VENTRICULAR TACHYCARDIA
     Route: 048
     Dates: start: 20060427
  21. TOPROL XL [Suspect]
     Active Substance: METOPROLOL SUCCINATE
     Indication: HEART RATE ABNORMAL
     Dosage: 50 MG IN AM AND 50 MG IN THE PM
     Route: 048
     Dates: start: 2007
  22. TOPROL XL [Suspect]
     Active Substance: METOPROLOL SUCCINATE
     Indication: VENTRICULAR TACHYCARDIA
     Dosage: 50 MG IN AM AND 25 MG IN THE PM
     Route: 048
     Dates: start: 2007
  23. TOPROL XL [Suspect]
     Active Substance: METOPROLOL SUCCINATE
     Indication: HYPERTENSION
     Dosage: GENERC MANUFACTURER PAR INCREASED FROM 50 MG TWICE DAILY TO 100 MG IN THE MORNING, 50 MG AT NIGHT
     Route: 048
     Dates: start: 2013
  24. TOPROL XL [Suspect]
     Active Substance: METOPROLOL SUCCINATE
     Indication: HYPERTENSION
     Dosage: ALTERNATELY USED PAR AND WATSON BRAND
     Route: 065
  25. MIRALAX [Concomitant]
     Active Substance: POLYETHYLENE GLYCOL 3350
     Indication: IRRITABLE BOWEL SYNDROME
     Dosage: MONTHLY, ONCE DAILY FOR FOR MONDAY, TUESDAY, AND WEDNESDAY
  26. TOPROL XL [Suspect]
     Active Substance: METOPROLOL SUCCINATE
     Indication: HYPERTENSION
     Route: 048
     Dates: start: 2005
  27. TOPROL XL [Suspect]
     Active Substance: METOPROLOL SUCCINATE
     Indication: VENTRICULAR TACHYCARDIA
     Dosage: GENERIC MANUFACTURED BY WATSON
     Route: 048
     Dates: start: 20130815
  28. TOPROL XL [Suspect]
     Active Substance: METOPROLOL SUCCINATE
     Indication: VENTRICULAR TACHYCARDIA
     Dosage: ALTERNATELY USED PAR AND WATSON BRAND
     Route: 065
  29. MIRALAX [Concomitant]
     Active Substance: POLYETHYLENE GLYCOL 3350
     Indication: CONSTIPATION
     Dosage: MONTHLY, ONCE DAILY FOR FOR MONDAY, TUESDAY, AND WEDNESDAY
  30. TOPROL XL [Suspect]
     Active Substance: METOPROLOL SUCCINATE
     Indication: VENTRICULAR TACHYCARDIA
     Dosage: ALTERNATELY USED PAR AND WATSON BRAND
     Route: 065
  31. NEXIUM [Suspect]
     Active Substance: ESOMEPRAZOLE MAGNESIUM
     Indication: GASTROINTESTINAL PAIN
     Route: 048
  32. TOPROL XL [Suspect]
     Active Substance: METOPROLOL SUCCINATE
     Indication: HYPERTENSION
     Dosage: 50 MG IN AM AND 50 MG IN THE PM
     Route: 048
     Dates: start: 2007
  33. TOPROL XL [Suspect]
     Active Substance: METOPROLOL SUCCINATE
     Indication: VENTRICULAR TACHYCARDIA
     Dosage: 50 MG IN AM AND 25 MG IN THE PM
     Route: 048
     Dates: start: 2007
  34. TOPROL XL [Suspect]
     Active Substance: METOPROLOL SUCCINATE
     Indication: VENTRICULAR TACHYCARDIA
     Dosage: GENERC MANUFACTURER PAR INCREASED FROM 50 MG TWICE DAILY TO 100 MG IN THE MORNING, 50 MG AT NIGHT
     Route: 048
     Dates: start: 2013
  35. TOPROL XL [Suspect]
     Active Substance: METOPROLOL SUCCINATE
     Indication: VENTRICULAR TACHYCARDIA
     Dosage: MANUFACTURED BY WATSON, 100 MG IN THE MORNING AND 50 MG AT NIGHT
     Route: 065
  36. TOPROL XL [Suspect]
     Active Substance: METOPROLOL SUCCINATE
     Indication: VENTRICULAR TACHYCARDIA
     Route: 048
     Dates: start: 2005
  37. TOPROL XL [Suspect]
     Active Substance: METOPROLOL SUCCINATE
     Indication: VENTRICULAR TACHYCARDIA
     Dosage: 100 MG IN AM AND 50 MG IN THE PM
     Route: 048
  38. TOPROL XL [Suspect]
     Active Substance: METOPROLOL SUCCINATE
     Indication: HEART RATE ABNORMAL
     Dosage: GENERC MANUFACTURER PAR INCREASED FROM 50 MG TWICE DAILY TO 100 MG IN THE MORNING, 50 MG AT NIGHT
     Route: 048
     Dates: start: 2013
  39. TOPROL XL [Suspect]
     Active Substance: METOPROLOL SUCCINATE
     Indication: VENTRICULAR TACHYCARDIA
     Dosage: GENERC MANUFACTURER PAR INCREASED FROM 50 MG TWICE DAILY TO 100 MG IN THE MORNING, 50 MG AT NIGHT
     Route: 048
     Dates: start: 2013
  40. TOPROL XL [Suspect]
     Active Substance: METOPROLOL SUCCINATE
     Indication: HEART RATE ABNORMAL
     Dosage: MANUFACTURED BY WATSON, 100 MG IN THE MORNING AND 50 MG AT NIGHT
     Route: 065
  41. ALBUTEROL. [Concomitant]
     Active Substance: ALBUTEROL
     Indication: PRODUCTIVE COUGH
     Dosage: 0.083 PERCENT AS REQUIRED, 1 VIAL EVERY 6 HOURS AS NEEDED
  42. NEXIUM [Suspect]
     Active Substance: ESOMEPRAZOLE MAGNESIUM
     Indication: NAUSEA
     Route: 048
  43. TOPROL XL [Suspect]
     Active Substance: METOPROLOL SUCCINATE
     Indication: HEART RATE ABNORMAL
     Route: 048
     Dates: start: 2005
  44. TOPROL XL [Suspect]
     Active Substance: METOPROLOL SUCCINATE
     Indication: VENTRICULAR TACHYCARDIA
     Route: 048
     Dates: start: 2005
  45. TOPROL XL [Suspect]
     Active Substance: METOPROLOL SUCCINATE
     Indication: VENTRICULAR TACHYCARDIA
     Route: 048
     Dates: start: 20060427
  46. TOPROL XL [Suspect]
     Active Substance: METOPROLOL SUCCINATE
     Indication: VENTRICULAR TACHYCARDIA
     Dosage: 50 MG IN AM AND 50 MG IN THE PM
     Route: 048
     Dates: start: 2007
  47. TOPROL XL [Suspect]
     Active Substance: METOPROLOL SUCCINATE
     Indication: VENTRICULAR TACHYCARDIA
     Dosage: 100 MG IN AM AND 50 MG IN THE PM
     Route: 048
  48. TOPROL XL [Suspect]
     Active Substance: METOPROLOL SUCCINATE
     Indication: HYPERTENSION
     Dosage: GENERIC MANUFACTURED BY WATSON
     Route: 048
     Dates: start: 20130815
  49. TOPROL XL [Suspect]
     Active Substance: METOPROLOL SUCCINATE
     Indication: VENTRICULAR TACHYCARDIA
     Dosage: GENERIC MANUFACTURED BY WATSON
     Route: 048
     Dates: start: 20130815
  50. TOPROL XL [Suspect]
     Active Substance: METOPROLOL SUCCINATE
     Indication: VENTRICULAR TACHYCARDIA
     Dosage: MANUFACTURED BY WATSON, 100 MG IN THE MORNING AND 50 MG AT NIGHT
     Route: 065
  51. CHLORHEXIDINE [Concomitant]
     Active Substance: CHLORHEXIDINE
     Indication: DENTAL CARE
     Dosage: AT NIGHT

REACTIONS (20)
  - Malaise [Recovered/Resolved]
  - Feeling abnormal [Recovered/Resolved]
  - Palpitations [Recovered/Resolved]
  - Extrasystoles [Recovered/Resolved]
  - Chronic obstructive pulmonary disease [Unknown]
  - Irritable bowel syndrome [Recovered/Resolved]
  - Bronchitis [Recovered/Resolved]
  - Dyspnoea [Recovered/Resolved]
  - Diarrhoea [Unknown]
  - Heart rate increased [Recovered/Resolved]
  - Blood triglycerides increased [Recovered/Resolved]
  - Nausea [Recovered/Resolved]
  - Dizziness [Recovered/Resolved]
  - Drug ineffective [Unknown]
  - Circulatory collapse [Unknown]
  - Gastroenteritis [Unknown]
  - Headache [Recovered/Resolved]
  - Clostridium difficile colitis [Recovered/Resolved]
  - Helicobacter infection [Unknown]
  - Ill-defined disorder [Unknown]

NARRATIVE: CASE EVENT DATE: 2005
